FAERS Safety Report 11444554 (Version 3)
Quarter: 2017Q3

REPORT INFORMATION
  Report Type: Report from Study
  Country: US (occurrence: US)
  Receive Date: 20150902
  Receipt Date: 20170911
  Transmission Date: 20171127
  Serious: Yes (Other)
  Sender: FDA-Public Use
  Company Number: US-ROCHE-1628597

PATIENT
  Sex: Male
  Weight: 92.35 kg

DRUGS (6)
  1. IBUPROFEN. [Concomitant]
     Active Substance: IBUPROFEN
     Route: 048
  2. ALPRAZOLAM. [Concomitant]
     Active Substance: ALPRAZOLAM
     Route: 048
  3. NORCO [Concomitant]
     Active Substance: ACETAMINOPHEN\HYDROCODONE BITARTRATE
     Dosage: 5-325 MG DO NOT EXCEED 10 TABLETS PER DAY
     Route: 048
  4. METHOCARBAMOL. [Concomitant]
     Active Substance: METHOCARBAMOL
     Route: 048
  5. NUTROPIN AQ [Suspect]
     Active Substance: SOMATROPIN
     Indication: GROWTH HORMONE DEFICIENCY
     Route: 058
  6. TADALAFIL [Concomitant]
     Active Substance: TADALAFIL
     Route: 048

REACTIONS (5)
  - Calcinosis [Unknown]
  - Blood testosterone free decreased [Unknown]
  - Mean platelet volume decreased [Unknown]
  - Spinal fracture [Unknown]
  - Concussion [Unknown]
